FAERS Safety Report 8803685 (Version 1)
Quarter: 2012Q4

REPORT INFORMATION
  Report Type: 
  Country: US (occurrence: US)
  Receive Date: 20120924
  Receipt Date: 20120924
  Transmission Date: 20130627
  Serious: Yes (Other)
  Sender: FDA-Public Use
  Company Number: US-ELI_LILLY_AND_COMPANY-US201209002818

PATIENT
  Sex: Female
  Weight: 52.15 kg

DRUGS (11)
  1. CYMBALTA [Suspect]
     Dosage: 30 mg, each morning
  2. CYMBALTA [Suspect]
     Dosage: 60 mg, each evening
  3. BELIMUMAB [Concomitant]
     Indication: SYSTEMIC LUPUS ERYTHEMATOSUS
     Dosage: 1 DF, monthly (1/M)
     Route: 042
  4. PRILOSEC [Concomitant]
     Dosage: UNK, unknown
  5. LODINE [Concomitant]
     Dosage: UNK, qd
  6. PLAQUENIL [Concomitant]
     Dosage: UNK, unknown
  7. KEPRA [Concomitant]
     Dosage: 500 mg, qd
  8. LORAZEPAM [Concomitant]
     Dosage: 1 mg, qd
  9. OXYCODONE [Concomitant]
     Indication: PAIN
     Dosage: 5 mg, prn
  10. DICYCLOMINE [Concomitant]
     Indication: IRRITABLE BOWEL SYNDROME
     Dosage: 2 DF, UNK
  11. ZANAFLEX [Concomitant]
     Dosage: 1 DF, each evening

REACTIONS (2)
  - Blister [Not Recovered/Not Resolved]
  - Rash pruritic [Recovering/Resolving]
